FAERS Safety Report 9741979 (Version 3)
Quarter: 2014Q2

REPORT INFORMATION
  Report Type: Spontaneous
  Country: US (occurrence: US)
  Receive Date: 20131210
  Receipt Date: 20140507
  Transmission Date: 20141212
  Serious: Yes (Other)
  Sender: FDA-Public Use
  Company Number: US-BAYER-2013-148411

PATIENT
  Age: 72 Year
  Sex: Male
  Weight: 81.63 kg

DRUGS (21)
  1. ALEVE CAPLET [Suspect]
     Indication: MUSCULOSKELETAL STIFFNESS
     Dosage: 1 DF, BID - TID
     Route: 048
     Dates: start: 201311, end: 20131203
  2. ALEVE CAPLET [Suspect]
     Indication: PAIN
  3. ALEVE CAPLET [Suspect]
     Indication: OSTEOARTHRITIS
  4. RANITIDINE [Concomitant]
     Dosage: 300 MG, HS
  5. METOPROLOL TARTRATE [Concomitant]
     Dosage: 2 DF, QD
  6. PRAVASTATIN [Concomitant]
     Dosage: 1 DF, QD
  7. FISH OIL [Concomitant]
     Dosage: 2 DF, BID
  8. CENTRUM SILVER [Concomitant]
  9. SUPER B COMPLEX [Concomitant]
  10. VITAMIN E 400 [Concomitant]
     Dosage: UNK UNK, QD
  11. VITAMIN C [Concomitant]
     Dosage: UNK UNK, QD
  12. METAMUCIL [Concomitant]
     Dosage: UNK UNK, HS
  13. GLUCOSAMINE [Concomitant]
  14. SULFUR OINTMENT [Concomitant]
     Indication: ECZEMA
     Dosage: UNK UNK, QD
  15. KETOCONAZOLE [Concomitant]
     Dosage: UNK UNK, QD
  16. AYR SALINE [Concomitant]
     Dosage: UNK UNK, HS
  17. DESONIDE [Concomitant]
     Dosage: UNK UNK, PRN
  18. MELOXICAM [Concomitant]
     Dosage: UNK UNK, PRN
  19. ANDROGEL [Concomitant]
  20. ASPIRIN [Concomitant]
     Dosage: UNK UNK, QD
  21. B COMPLEX [VITAMIN-B-KOMPLEX STANDARD] [Concomitant]
     Dosage: UNK UNK, QD

REACTIONS (6)
  - Haematochezia [Recovered/Resolved]
  - Haematochezia [Recovered/Resolved]
  - Faeces discoloured [Recovered/Resolved]
  - Faeces hard [Recovered/Resolved]
  - Incorrect drug administration duration [None]
  - Off label use [None]
